FAERS Safety Report 9308913 (Version 2)
Quarter: 2013Q4

REPORT INFORMATION
  Report Type: Report from Study
  Country: JP (occurrence: JP)
  Receive Date: 20130524
  Receipt Date: 20131115
  Transmission Date: 20140711
  Serious: Yes (Disabling)
  Sender: FDA-Public Use
  Company Number: JP-ALLERGAN-1307357US

PATIENT
  Age: 76 Year
  Sex: Female

DRUGS (6)
  1. BIMATOPROST 0.03% SOL-EYE (9106X) [Suspect]
     Indication: ANGLE CLOSURE GLAUCOMA
     Dosage: 1 GTT, QD
     Route: 047
     Dates: start: 20111014, end: 20120111
  2. BIMATOPROST 0.03% SOL-EYE (9106X) [Suspect]
     Dosage: 1 UNK, UNK
     Route: 047
     Dates: start: 20111014
  3. MIROL [Concomitant]
     Indication: PRODUCT USED FOR UNKNOWN INDICATION
     Dosage: UNK
     Route: 065
     Dates: end: 20111013
  4. COSOPT [Concomitant]
     Indication: PRODUCT USED FOR UNKNOWN INDICATION
     Dosage: UNK
     Route: 065
     Dates: start: 20111013
  5. DETANTOL [Concomitant]
     Indication: PRODUCT USED FOR UNKNOWN INDICATION
     Dosage: UNK
     Route: 065
  6. DIAMOX [Concomitant]
     Indication: PRODUCT USED FOR UNKNOWN INDICATION
     Dosage: UNK
     Route: 065
     Dates: start: 20111117

REACTIONS (2)
  - Ocular hypertension [Recovering/Resolving]
  - Visual field defect [Not Recovered/Not Resolved]
